FAERS Safety Report 9805015 (Version 1)
Quarter: 2014Q1

REPORT INFORMATION
  Report Type: Report from Study
  Country: US (occurrence: US)
  Receive Date: 20140109
  Receipt Date: 20140109
  Transmission Date: 20141002
  Serious: Yes (Other)
  Sender: FDA-Public Use
  Company Number: US-ROCHE-1312677

PATIENT
  Sex: Male
  Weight: 74 kg

DRUGS (8)
  1. AVASTIN [Suspect]
     Indication: COLON CANCER
     Route: 042
     Dates: start: 20121126, end: 20121126
  2. AVASTIN [Suspect]
     Route: 042
     Dates: start: 20121226, end: 20121226
  3. AVASTIN [Suspect]
     Route: 042
     Dates: start: 20130107, end: 20130107
  4. ALOXI [Concomitant]
     Route: 042
     Dates: start: 20121226, end: 20121226
  5. ALOXI [Concomitant]
     Route: 042
     Dates: start: 20130107, end: 20130107
  6. DEXAMETHASONE [Concomitant]
     Route: 041
     Dates: start: 20121226, end: 20121226
  7. OXALIPLATIN [Concomitant]
     Route: 042
     Dates: start: 20121226, end: 20121226
  8. 5-FU [Concomitant]
     Route: 065
     Dates: start: 20121226, end: 20121226

REACTIONS (4)
  - Chalazion [Unknown]
  - Bradycardia [Unknown]
  - Cough [Unknown]
  - Fatigue [Unknown]
